FAERS Safety Report 10211458 (Version 1)
Quarter: 2014Q2

REPORT INFORMATION
  Report Type: Spontaneous
  Country: US (occurrence: US)
  Receive Date: 20140602
  Receipt Date: 20140602
  Transmission Date: 20141212
  Serious: Yes (Other)
  Sender: FDA-Public Use
  Company Number: US-PURDUE-USA-2014-0114342

PATIENT
  Age: 58 Year
  Sex: Male

DRUGS (1)
  1. BUTRANS [Suspect]
     Indication: BACK PAIN
     Dosage: 15 MCG/HR, WEEKLY
     Route: 062
     Dates: start: 20140504, end: 20140508

REACTIONS (10)
  - Altered state of consciousness [Unknown]
  - Dyskinesia [Unknown]
  - Drooling [Unknown]
  - Convulsion [Unknown]
  - Loss of consciousness [Recovered/Resolved]
  - Impaired driving ability [Unknown]
  - Headache [Recovered/Resolved]
  - Dizziness [Recovered/Resolved]
  - Feeling abnormal [Recovered/Resolved]
  - Drug ineffective [Recovered/Resolved]
